FAERS Safety Report 7761448-0 (Version None)
Quarter: 2011Q3

REPORT INFORMATION
  Report Type: 
  Country: None (occurrence: None)
  Receive Date: 20110920
  Receipt Date: 20110825
  Transmission Date: 20111222
  Serious: No
  Sender: FDA-Public Use
  Company Number: US-JNJFOC-20110811745

PATIENT
  Sex: Female

DRUGS (1)
  1. INVEGA [Suspect]
     Indication: SCHIZOPHRENIA
     Route: 048
     Dates: start: 20080101

REACTIONS (7)
  - HEADACHE [None]
  - ASTHENIA [None]
  - PAIN IN JAW [None]
  - PRODUCT QUALITY ISSUE [None]
  - FATIGUE [None]
  - FACIAL PAIN [None]
  - PAIN IN EXTREMITY [None]
